FAERS Safety Report 4749109-3 (Version None)
Quarter: 2005Q4

REPORT INFORMATION
  Report Type: 
  Country: None (occurrence: None)
  Receive Date: 20050819
  Receipt Date: 20050809
  Transmission Date: 20060501
  Serious: Yes (Life-Threatening, Hospitalization)
  Sender: FDA-Public Use
  Company Number: DE-ROCHE-413631

PATIENT
  Age: 19 Year
  Sex: Male
  Weight: 49 kg

DRUGS (2)
  1. VALGANCICLOVIR [Suspect]
     Route: 065
     Dates: start: 20040928, end: 20050215
  2. POSACONAZOLE [Suspect]
     Indication: FUNGAL INFECTION
     Route: 048
     Dates: start: 20041124

REACTIONS (2)
  - NEUTROPENIA [None]
  - PNEUMONIA [None]
